FAERS Safety Report 16364147 (Version 1)
Quarter: 2019Q2

REPORT INFORMATION
  Report Type: Spontaneous
  Country: US (occurrence: US)
  Receive Date: 20190528
  Receipt Date: 20190528
  Transmission Date: 20190711
  Serious: No
  Sender: FDA-Public Use
  Company Number: US-GLAXOSMITHKLINE-US2019094150

PATIENT
  Age: 79 Year
  Sex: Male

DRUGS (1)
  1. FLONASE [Suspect]
     Active Substance: FLUTICASONE PROPIONATE
     Indication: RHINORRHOEA
     Dosage: I WAS TAKING IT 2 SPRAYS PER NOSTRIL
     Dates: start: 20190513, end: 20190522

REACTIONS (1)
  - Drug ineffective [Unknown]
